FAERS Safety Report 23982640 (Version 1)
Quarter: 2024Q2

REPORT INFORMATION
  Report Type: Spontaneous
  Country: FI (occurrence: FI)
  Receive Date: 20240617
  Receipt Date: 20240617
  Transmission Date: 20240716
  Serious: Yes (Life-Threatening)
  Sender: FDA-Public Use
  Company Number: None

PATIENT
  Age: 49 Year
  Sex: Female

DRUGS (2)
  1. XARELTO [Concomitant]
     Active Substance: RIVAROXABAN
     Indication: Pulmonary embolism
     Dosage: UNK
     Route: 048
     Dates: start: 202004
  2. OZEMPIC [Suspect]
     Active Substance: SEMAGLUTIDE
     Indication: Weight control
     Dosage: UNK
     Route: 058
     Dates: start: 2023, end: 2023

REACTIONS (5)
  - Pruritus [Recovered/Resolved]
  - Oral pruritus [Recovered/Resolved]
  - Erythema [Recovered/Resolved]
  - Dysgeusia [Recovered/Resolved]
  - Product use in unapproved indication [Recovered/Resolved]

NARRATIVE: CASE EVENT DATE: 20230101
